FAERS Safety Report 7758594-4 (Version None)
Quarter: 2011Q3

REPORT INFORMATION
  Report Type: 
  Country: None (occurrence: None)
  Receive Date: 20110919
  Receipt Date: 20110907
  Transmission Date: 20111222
  Serious: No
  Sender: FDA-Public Use
  Company Number: CA-ELI_LILLY_AND_COMPANY-CA201109001617

PATIENT
  Sex: Female

DRUGS (9)
  1. HALDOL [Concomitant]
  2. ST. JOHN'S WORT [Concomitant]
  3. ZYPREXA [Suspect]
     Dosage: 10 MG, EACH EVENING
  4. ZYPREXA [Suspect]
     Dosage: 15 MG, EACH EVENING
  5. MODECATE [Concomitant]
  6. ZYPREXA [Suspect]
     Indication: SCHIZOPHRENIA
     Dosage: 5 MG, EACH EVENING
     Dates: start: 19971229, end: 20030101
  7. LORAZEPAM [Concomitant]
  8. COGENTIN [Concomitant]
  9. RISPERDAL CONSTA [Concomitant]

REACTIONS (5)
  - IRON DEFICIENCY ANAEMIA [None]
  - RECTAL HAEMORRHAGE [None]
  - PAIN IN EXTREMITY [None]
  - MUSCULAR WEAKNESS [None]
  - TYPE 2 DIABETES MELLITUS [None]
